FAERS Safety Report 4347768-0 (Version None)
Quarter: 2004Q2

REPORT INFORMATION
  Report Type: 
  Country: None (occurrence: None)
  Receive Date: 20040422
  Receipt Date: 20040406
  Transmission Date: 20050107
  Serious: Yes (Hospitalization, Disabling, Other)
  Sender: FDA-Public Use
  Company Number: US_0403101663

PATIENT
  Age: 62 Year
  Sex: Male
  Weight: 96 kg

DRUGS (2)
  1. HUMULIN U [Suspect]
  2. HUMULIN R [Suspect]
     Dosage: 60 U/DAY

REACTIONS (6)
  - BLOOD GLUCOSE INCREASED [None]
  - CHONDROPATHY [None]
  - DYSSTASIA [None]
  - FINGER AMPUTATION [None]
  - LEG AMPUTATION [None]
  - PHARMACEUTICAL PRODUCT COMPLAINT [None]
